FAERS Safety Report 13449960 (Version 1)
Quarter: 2017Q2

REPORT INFORMATION
  Report Type: Spontaneous
  Country: US (occurrence: US)
  Receive Date: 20170417
  Receipt Date: 20170417
  Transmission Date: 20170830
  Serious: No
  Sender: FDA-Public Use
  Company Number: US-BION-20160367

PATIENT
  Age: 73 Year
  Sex: Female
  Weight: 71.21 kg

DRUGS (2)
  1. CIPRO [Concomitant]
     Active Substance: CIPROFLOXACIN HYDROCHLORIDE
  2. ALEVE [Suspect]
     Active Substance: NAPROXEN SODIUM
     Indication: BLADDER DISCOMFORT
     Dosage: 2 DF EVERY 4-6 HOURS
     Route: 048

REACTIONS (4)
  - Chromaturia [Not Recovered/Not Resolved]
  - Intentional overdose [Unknown]
  - Wrong technique in product usage process [Unknown]
  - Product use in unapproved indication [Unknown]

NARRATIVE: CASE EVENT DATE: 20160728
